FAERS Safety Report 17846775 (Version 1)
Quarter: 2020Q2

REPORT INFORMATION
  Report Type: Spontaneous
  Country: US (occurrence: US)
  Receive Date: 20200601
  Receipt Date: 20200601
  Transmission Date: 20200714
  Serious: No
  Sender: FDA-Public Use
  Company Number: NVSC2020US151034

PATIENT
  Sex: Female

DRUGS (1)
  1. TYKERB [Suspect]
     Active Substance: LAPATINIB DITOSYLATE
     Indication: OESOPHAGEAL CARCINOMA
     Dosage: 1250 MG, QD
     Route: 048
     Dates: start: 20200417

REACTIONS (3)
  - Weight decreased [Unknown]
  - Product use in unapproved indication [Unknown]
  - Decreased appetite [Unknown]
